FAERS Safety Report 12833652 (Version 1)
Quarter: 2016Q4

REPORT INFORMATION
  Report Type: Spontaneous
  Country: US (occurrence: US)
  Receive Date: 20161010
  Receipt Date: 20161010
  Transmission Date: 20170207
  Serious: Yes (Other)
  Sender: FDA-Public Use
  Company Number: US-TEVA-700248USA

PATIENT
  Age: 52 Year
  Sex: Female

DRUGS (2)
  1. SULFABENZAMIDE. [Concomitant]
     Active Substance: SULFABENZAMIDE
  2. COPAXONE [Suspect]
     Active Substance: GLATIRAMER ACETATE
     Indication: MULTIPLE SCLEROSIS
     Dosage: 20 MILLIGRAM/MILLILITERS DAILY;
     Route: 058
     Dates: start: 20150529

REACTIONS (7)
  - Hypoaesthesia [Unknown]
  - Hemiparesis [Unknown]
  - Product use issue [Unknown]
  - Spinal cord compression [Unknown]
  - Multiple sclerosis [Unknown]
  - Secondary progressive multiple sclerosis [Unknown]
  - Injection site atrophy [Unknown]

NARRATIVE: CASE EVENT DATE: 20160930
